FAERS Safety Report 23930555 (Version 2)
Quarter: 2024Q3

REPORT INFORMATION
  Report Type: Report from Study
  Country: FR (occurrence: FR)
  Receive Date: 20240603
  Receipt Date: 20240703
  Transmission Date: 20241016
  Serious: Yes (Hospitalization, Other)
  Sender: ABBVIE
  Company Number: FR-ABBVIE-5782062

PATIENT
  Sex: Male

DRUGS (2)
  1. CARBIDOPA\LEVODOPA [Suspect]
     Active Substance: CARBIDOPA\LEVODOPA
     Indication: Parkinson^s disease
     Route: 050
     Dates: start: 20240515
  2. CARBIDOPA\LEVODOPA [Suspect]
     Active Substance: CARBIDOPA\LEVODOPA

REACTIONS (7)
  - Pneumoperitoneum [Recovering/Resolving]
  - Device issue [Unknown]
  - Gastrointestinal surgery [Unknown]
  - Anaemia [Not Recovered/Not Resolved]
  - Ascites [Unknown]
  - Weight decreased [Not Recovered/Not Resolved]
  - Anorectal operation [Unknown]

NARRATIVE: CASE EVENT DATE: 20240101
